FAERS Safety Report 19943434 (Version 1)
Quarter: 2021Q4

REPORT INFORMATION
  Report Type: Spontaneous
  Country: US (occurrence: US)
  Receive Date: 20211011
  Receipt Date: 20211011
  Transmission Date: 20220303
  Serious: Yes (Other)
  Sender: FDA-Public Use
  Company Number: US-SUNOVION-2021SUN003860

PATIENT
  Age: 51 Year
  Sex: Female

DRUGS (2)
  1. LATUDA [Suspect]
     Active Substance: LURASIDONE HYDROCHLORIDE
     Dosage: 20 MG
     Route: 048
  2. VRAYLAR [Concomitant]
     Active Substance: CARIPRAZINE

REACTIONS (3)
  - Bipolar disorder [Unknown]
  - Illness [Unknown]
  - Weight increased [Unknown]
